FAERS Safety Report 17400831 (Version 1)
Quarter: 2020Q1

REPORT INFORMATION
  Report Type: Spontaneous
  Country: US (occurrence: US)
  Receive Date: 20200127
  Receipt Date: 20200127
  Transmission Date: 20200409
  Serious: No
  Sender: FDA-Public Use
  Company Number: None

PATIENT
  Age: 51 Year
  Sex: Female

DRUGS (1)
  1. COSENTYX [Suspect]
     Active Substance: SECUKINUMAB
     Indication: PSORIASIS
     Dosage: INJECT 300MG (2 PEN)S SUBCUTANEOUSLY EVERY WEEK FOR 5  WEEKS AS DIRECTED
     Route: 058
     Dates: start: 201904

REACTIONS (3)
  - Paraesthesia [None]
  - Influenza [None]
  - Respiration abnormal [None]
